FAERS Safety Report 6218643-1 (Version None)
Quarter: 2009Q2

REPORT INFORMATION
  Report Type: 
  Country: None (occurrence: None)
  Receive Date: 20090608
  Receipt Date: 20090526
  Transmission Date: 20091009
  Serious: Yes (Other)
  Sender: FDA-Public Use
  Company Number: IL-NOVOPROD-287968

PATIENT
  Age: 39 Year
  Sex: Female

DRUGS (3)
  1. NOVOLOG [Suspect]
     Indication: TYPE 1 DIABETES MELLITUS
     Dosage: 12 IU, QD
     Dates: start: 20090504, end: 20090524
  2. NOVOMIX 30 [Concomitant]
     Indication: TYPE 1 DIABETES MELLITUS
     Dosage: 40 U, BID
     Dates: start: 20070101
  3. APIDRA [Concomitant]
     Indication: TYPE 1 DIABETES MELLITUS

REACTIONS (4)
  - ERYTHEMA [None]
  - EYE SWELLING [None]
  - SUFFOCATION FEELING [None]
  - SWELLING [None]
